FAERS Safety Report 6115014-3 (Version None)
Quarter: 2009Q1

REPORT INFORMATION
  Report Type: 
  Country: None (occurrence: None)
  Receive Date: 20090313
  Receipt Date: 20090309
  Transmission Date: 20090719
  Serious: Yes (Hospitalization)
  Sender: FDA-Public Use
  Company Number: A0772088A

PATIENT

DRUGS (2)
  1. LOVAZA [Suspect]
     Indication: DRUG USE FOR UNKNOWN INDICATION
  2. UNKNOWN [Concomitant]

REACTIONS (2)
  - THYROID DISORDER [None]
  - THYROIDITIS [None]
